FAERS Safety Report 17510816 (Version 1)
Quarter: 2020Q1

REPORT INFORMATION
  Report Type: Spontaneous
  Country: IE (occurrence: IE)
  Receive Date: 20200306
  Receipt Date: 20200306
  Transmission Date: 20200409
  Serious: Yes (Life-Threatening, Hospitalization)
  Sender: FDA-Public Use
  Company Number: IE-VIRTUS PHARMACEUTICALS, LLC-2020VTS00016

PATIENT
  Age: 52 Year
  Sex: Male

DRUGS (4)
  1. MEXILETINE [Concomitant]
     Active Substance: MEXILETINE
     Dosage: 100 MG, 2X/DAY
     Route: 065
  2. DAPSONE. [Suspect]
     Active Substance: DAPSONE
     Indication: PNEUMOCYSTIS JIROVECII PNEUMONIA
     Dosage: 100 MG
     Route: 065
     Dates: start: 2018
  3. MEXILETINE [Concomitant]
     Active Substance: MEXILETINE
     Dosage: 200 UNK
     Route: 065
  4. MEXILETINE [Concomitant]
     Active Substance: MEXILETINE
     Dosage: 300 MG, 3X/DAY
     Route: 065

REACTIONS (4)
  - Ventricular fibrillation [Recovered/Resolved]
  - Ventricular tachycardia [Recovered/Resolved]
  - Circulatory collapse [Recovered/Resolved]
  - Coronary artery stenosis [Recovered/Resolved]

NARRATIVE: CASE EVENT DATE: 2018
